FAERS Safety Report 16387652 (Version 1)
Quarter: 2019Q2

REPORT INFORMATION
  Report Type: Spontaneous
  Country: US (occurrence: US)
  Receive Date: 20190426
  Receipt Date: 20190426
  Transmission Date: 20190711
  Serious: Yes (Hospitalization, Disabling, Other)
  Sender: FDA-Public Use
  Company Number: None

PATIENT
  Age: 76 Year
  Sex: Female
  Weight: 89.81 kg

DRUGS (23)
  1. BUMETANIDE 1 MG [Concomitant]
     Active Substance: BUMETANIDE
  2. METFORMIN [Concomitant]
     Active Substance: METFORMIN HYDROCHLORIDE
  3. PROPRANOLOL 20MG [Concomitant]
     Active Substance: PROPRANOLOL HYDROCHLORIDE
  4. POTASSIUM CL  20MG MEQ ER [Concomitant]
  5. ALPRAZOLAM 0.5MG [Concomitant]
     Active Substance: ALPRAZOLAM
  6. PROMO PEXOLE [Concomitant]
  7. FLORASTOR [Concomitant]
     Active Substance: SACCHAROMYCES CEREVISIAE
  8. VIT B-12 [Concomitant]
  9. ROSUVASTATIN 1/2 OF 5MG [Concomitant]
  10. HYDROCODONE [Concomitant]
     Active Substance: HYDROCODONE
  11. CALCIUM [Concomitant]
     Active Substance: CALCIUM
  12. RYTARG [Concomitant]
  13. CULTURELLE [Concomitant]
     Active Substance: LACTOBACILLUS RHAMNOSUS
  14. FOLIC ACID 1MG [Concomitant]
     Active Substance: FOLIC ACID
  15. VITAMIN D3 [Concomitant]
     Active Substance: CHOLECALCIFEROL
  16. ABILIFY [Concomitant]
     Active Substance: ARIPIPRAZOLE
  17. PREDNISOLONE ACETATE. [Concomitant]
     Active Substance: PREDNISOLONE ACETATE
  18. DIAXINOL [Concomitant]
  19. MYCOPHENOLATE 500MG [Suspect]
     Active Substance: MYCOPHENOLIC ACID
     Indication: AUTOIMMUNE DISORDER
     Dosage: ?          QUANTITY:2 PILLS;?
     Route: 048
     Dates: start: 2016, end: 2017
  20. PROGESTERONE. [Concomitant]
     Active Substance: PROGESTERONE
  21. DULOXETINE 60 MG [Concomitant]
     Active Substance: DULOXETINE
  22. DORZOLEMIDE HCL-TIMOLO MALEATE [Concomitant]
  23. VITAMIN C [Concomitant]
     Active Substance: ASCORBIC ACID

REACTIONS (3)
  - Back pain [None]
  - Cardiac failure congestive [None]
  - Secretion discharge [None]

NARRATIVE: CASE EVENT DATE: 20171201
